FAERS Safety Report 15427252 (Version 1)
Quarter: 2018Q3

REPORT INFORMATION
  Report Type: Report from Study
  Country: AR (occurrence: AR)
  Receive Date: 20180925
  Receipt Date: 20180925
  Transmission Date: 20181010
  Serious: Yes (Hospitalization, Other)
  Sender: FDA-Public Use
  Company Number: AR-ACTELION-A-CH2018-179231

PATIENT
  Age: 52 Year
  Sex: Female
  Weight: 58 kg

DRUGS (1)
  1. OPSUMIT [Suspect]
     Active Substance: MACITENTAN
     Indication: PULMONARY ARTERIAL HYPERTENSION
     Dosage: 10 MG, QD
     Route: 048
     Dates: start: 20161201

REACTIONS (3)
  - Musculoskeletal discomfort [Unknown]
  - Infection [Unknown]
  - Bacterial infection [Unknown]

NARRATIVE: CASE EVENT DATE: 201806
